FAERS Safety Report 10414946 (Version 1)
Quarter: 2014Q2

REPORT INFORMATION
  Report Type: Spontaneous
  Country: US (occurrence: None)
  Receive Date: 20140604
  Receipt Date: 20140604
  Transmission Date: 20141212
  Serious: No
  Sender: FDA-Public Use
  Company Number: 163-POMAL-14032209

PATIENT
  Age: 53 Year
  Sex: Female

DRUGS (8)
  1. POMALYST (POMALIDOMIDE) (4 MILLIGRAM, CAPSULES) [Suspect]
     Indication: PLASMA CELL MYELOMA
     Dosage: 21 IN 28 D
     Route: 048
     Dates: start: 20140214
  2. DEXAMETHASONE(DEXAMETHASONE)(UNKNOWN) [Concomitant]
  3. OMEPRAZOLE(OMEPRAZOLE)(UNKNOWN) [Concomitant]
  4. AZITHROMYCIN(AZITHROMYCIN)(UNKNOWN) [Concomitant]
  5. LORAZEPAM(LORAZEPAM)(UNKNOWN) [Concomitant]
  6. ONDANSETRON(ONDANSETRON)(UNKNOWN) [Concomitant]
  7. SERTRALINE(SERTRALINE)(UNKNOWN) [Concomitant]
  8. HYDROCODONE/ACETAMINOPHEN(REMEDEINE)(UNKNOWN) [Concomitant]

REACTIONS (4)
  - Abdominal distension [None]
  - Diarrhoea [None]
  - Anaemia [None]
  - Dyspnoea [None]
